FAERS Safety Report 10564684 (Version 1)
Quarter: 2014Q4

REPORT INFORMATION
  Report Type: Spontaneous
  Country: PL (occurrence: PL)
  Receive Date: 20141104
  Receipt Date: 20141104
  Transmission Date: 20150529
  Serious: Yes (Hospitalization)
  Sender: FDA-Public Use
  Company Number: PL-009507513-1410POL015570

PATIENT
  Age: 52 Year
  Sex: Female
  Weight: 80 kg

DRUGS (3)
  1. RIBAVIRIN. [Suspect]
     Active Substance: RIBAVIRIN
     Indication: HEPATITIS C
     Dosage: DOSE UNSPECIFIED
     Route: 041
     Dates: start: 20140523, end: 20140530
  2. INTERFERON ALFA-2A [Concomitant]
     Active Substance: INTERFERON ALFA-2A
     Dates: start: 20140331
  3. TELAPREVIR [Concomitant]
     Active Substance: TELAPREVIR
     Dates: start: 20140331

REACTIONS (1)
  - Rash papular [Recovered/Resolved]

NARRATIVE: CASE EVENT DATE: 20140525
